FAERS Safety Report 17540817 (Version 2)
Quarter: 2020Q1

REPORT INFORMATION
  Report Type: Report from Study
  Country: None (occurrence: US)
  Receive Date: 20200313
  Receipt Date: 20200330
  Transmission Date: 20200409
  Serious: Yes (Hospitalization)
  Sender: FDA-Public Use
  Company Number: US-ABBVIE-20K-163-3313832-00

PATIENT
  Sex: Male
  Weight: 70.37 kg

DRUGS (18)
  1. DUOPA [Suspect]
     Active Substance: CARBIDOPA\LEVODOPA
     Indication: PARKINSON^S DISEASE
     Route: 050
     Dates: start: 20160510
  2. CLONAZEPAM. [Concomitant]
     Active Substance: CLONAZEPAM
     Indication: PRODUCT USED FOR UNKNOWN INDICATION
  3. CELLCEPT [Concomitant]
     Active Substance: MYCOPHENOLATE MOFETIL\MYCOPHENOLATE MOFETIL HYDROCHLORIDE
     Indication: CHRONIC INFLAMMATORY DEMYELINATING POLYRADICULONEUROPATHY
  4. ALLOPURINOL. [Concomitant]
     Active Substance: ALLOPURINOL
     Indication: GOUT
  5. WARFARIN [Concomitant]
     Active Substance: WARFARIN
     Indication: ANTICOAGULANT THERAPY
  6. LORAZEPAM. [Concomitant]
     Active Substance: LORAZEPAM
     Indication: INSOMNIA
  7. HYDROCODONE/ACETAMINOPHEN [Concomitant]
     Active Substance: ACETAMINOPHEN\HYDROCODONE
     Indication: PRODUCT USED FOR UNKNOWN INDICATION
  8. TRAZODONE [Concomitant]
     Active Substance: TRAZODONE HYDROCHLORIDE
     Indication: PRODUCT USED FOR UNKNOWN INDICATION
  9. CITALOPRAM [Concomitant]
     Active Substance: CITALOPRAM HYDROBROMIDE
     Indication: DEPRESSION
  10. CYCLOBENZAPRINE. [Concomitant]
     Active Substance: CYCLOBENZAPRINE
     Indication: PAIN IN EXTREMITY
  11. CARBIDOPA-LEVODOPA [Concomitant]
     Active Substance: CARBIDOPA\LEVODOPA
     Indication: PARKINSON^S DISEASE
  12. TRAMADOL. [Concomitant]
     Active Substance: TRAMADOL
     Indication: PAIN
  13. QUETIAPINE. [Concomitant]
     Active Substance: QUETIAPINE
     Indication: BLOOD CHOLESTEROL INCREASED
  14. ENALAPRIL [Concomitant]
     Active Substance: ENALAPRIL
     Indication: PRODUCT USED FOR UNKNOWN INDICATION
  15. QUETIAPINE. [Concomitant]
     Active Substance: QUETIAPINE
     Indication: PRODUCT USED FOR UNKNOWN INDICATION
  16. LEVOTHYROXINE. [Concomitant]
     Active Substance: LEVOTHYROXINE
     Indication: PRODUCT USED FOR UNKNOWN INDICATION
  17. DOXAZOSIN [Concomitant]
     Active Substance: DOXAZOSIN MESYLATE
     Indication: PRODUCT USED FOR UNKNOWN INDICATION
  18. HYDROCHLOROTHIAZIDE. [Concomitant]
     Active Substance: HYDROCHLOROTHIAZIDE
     Indication: PRODUCT USED FOR UNKNOWN INDICATION

REACTIONS (3)
  - Dysstasia [Not Recovered/Not Resolved]
  - Parkinson^s disease [Not Recovered/Not Resolved]
  - Weight decreased [Not Recovered/Not Resolved]

NARRATIVE: CASE EVENT DATE: 2020
